FAERS Safety Report 21269549 (Version 1)
Quarter: 2022Q3

REPORT INFORMATION
  Report Type: Spontaneous
  Country: US (occurrence: None)
  Receive Date: 20220829
  Receipt Date: 20220829
  Transmission Date: 20221027
  Serious: Yes (Hospitalization, Disabling, Other)
  Sender: FDA-Public Use
  Company Number: None

PATIENT
  Age: 73 Year
  Sex: Female

DRUGS (3)
  1. METOPROLOL SUCCINATE [Suspect]
     Active Substance: METOPROLOL SUCCINATE
     Indication: Hypertension
     Dosage: FREQUENCY : TWICE A DAY;?
     Route: 048
     Dates: start: 20220729, end: 20220802
  2. ATORVASTATIN 10MG TABS [Concomitant]
     Dates: start: 20180731, end: 20220818
  3. TRAMADOL 50MG TABS [Concomitant]
     Dates: start: 20180731

REACTIONS (3)
  - Product substitution issue [None]
  - Drug ineffective [None]
  - Cerebrovascular accident [None]

NARRATIVE: CASE EVENT DATE: 20220809
